FAERS Safety Report 17153012 (Version 1)
Quarter: 2019Q4

REPORT INFORMATION
  Report Type: Spontaneous
  Country: US (occurrence: US)
  Receive Date: 20191213
  Receipt Date: 20191213
  Transmission Date: 20200122
  Serious: Yes (Hospitalization)
  Sender: FDA-Public Use
  Company Number: US-DSJP-DSU-2019-148921

PATIENT

DRUGS (7)
  1. LOSARTAN. [Suspect]
     Active Substance: LOSARTAN
     Dosage: UNK
  2. OLMESARTAN MEDOXOMIL TEVA [Suspect]
     Active Substance: OLMESARTAN MEDOXOMIL
     Indication: HYPERTENSION
     Dosage: 20 MG, QD
     Route: 048
     Dates: start: 20190403, end: 2019
  3. OLMESARTAN MEDOXOMIL GLENMARK [Suspect]
     Active Substance: OLMESARTAN MEDOXOMIL
     Indication: HYPERTENSION
     Dosage: 20 MG, QD
     Route: 048
     Dates: start: 2019, end: 2019
  4. BENICAR [Suspect]
     Active Substance: OLMESARTAN MEDOXOMIL
     Indication: HYPERTENSION
     Dosage: 20 MG, QD
     Route: 048
     Dates: start: 2005
  5. BENICAR [Suspect]
     Active Substance: OLMESARTAN MEDOXOMIL
     Dosage: 20 MG, QD
     Route: 048
  6. LOTREL                             /01388302/ [Suspect]
     Active Substance: LOTEPREDNOL ETABONATE
     Indication: HYPERTENSION
     Dosage: UNK
     Route: 065
  7. LOSARTAN. [Suspect]
     Active Substance: LOSARTAN
     Indication: HYPERTENSION
     Dosage: UNK
     Route: 065

REACTIONS (5)
  - Dizziness [Recovered/Resolved]
  - Gait disturbance [Recovered/Resolved]
  - Hip arthroplasty [Recovered/Resolved]
  - Drug ineffective [Unknown]
  - Stress [Unknown]

NARRATIVE: CASE EVENT DATE: 2019
